FAERS Safety Report 8402461-X (Version None)
Quarter: 2012Q2

REPORT INFORMATION
  Report Type: 
  Country: None (occurrence: None)
  Receive Date: 20120323
  Receipt Date: 20110107
  Transmission Date: 20120825
  Serious: Yes (Hospitalization)
  Sender: FDA-Public Use
  Company Number: 163-21880-11010865

PATIENT
  Sex: Male

DRUGS (2)
  1. REVLIMID [Suspect]
     Indication: MULTIPLE MYELOMA
     Dosage: 25 MG, DAILY, PO
     Route: 048
     Dates: start: 20101201
  2. ZOMETA [Concomitant]

REACTIONS (4)
  - RENAL FAILURE ACUTE [None]
  - NEUROPATHY PERIPHERAL [None]
  - ELECTROLYTE IMBALANCE [None]
  - RENAL TUBULAR DISORDER [None]
